FAERS Safety Report 23013993 (Version 1)
Quarter: 2023Q4

REPORT INFORMATION
  Report Type: Report from Study
  Country: US (occurrence: US)
  Receive Date: 20231001
  Receipt Date: 20231001
  Transmission Date: 20240110
  Serious: Yes (Hospitalization)
  Sender: FDA-Public Use
  Company Number: US-BEH-2022145976

PATIENT
  Age: 35 Year
  Sex: Male
  Weight: 99.773 kg

DRUGS (2)
  1. HIZENTRA [Suspect]
     Active Substance: HUMAN IMMUNOGLOBULIN G
     Indication: Primary immunodeficiency syndrome
     Dosage: 40 GRAM, BIW
     Route: 058
     Dates: start: 20211214, end: 202307
  2. HIZENTRA [Suspect]
     Active Substance: HUMAN IMMUNOGLOBULIN G
     Dosage: 40 GRAM, BIW
     Route: 058
     Dates: start: 20211214, end: 202202

REACTIONS (6)
  - No adverse event [Unknown]
  - Product dose omission in error [Unknown]
  - Insurance issue [Unknown]
  - Weight increased [Unknown]
  - Dyspnoea [Unknown]
  - Insurance issue [Unknown]
